FAERS Safety Report 6571631-8 (Version None)
Quarter: 2010Q1

REPORT INFORMATION
  Report Type: 
  Country: None (occurrence: None)
  Receive Date: 20100205
  Receipt Date: 20100125
  Transmission Date: 20100710
  Serious: Yes (Other)
  Sender: FDA-Public Use
  Company Number: PHEH2008US02515

PATIENT
  Sex: Male

DRUGS (20)
  1. AREDIA [Suspect]
     Dosage: 90 MG, QMO
     Route: 042
     Dates: start: 19950101, end: 20020101
  2. ZOMETA [Suspect]
     Dosage: 4MG/5ML EVERY 28 DAYS
     Dates: start: 20021101, end: 20051101
  3. HALDOL [Concomitant]
     Dosage: 3MG, DAILY
     Route: 048
  4. ZOLOFT [Concomitant]
     Dosage: 50MG, EVERY NIGHT AT BEDTIME
     Route: 048
  5. INTERFERON [Concomitant]
  6. RADIATION [Concomitant]
  7. CHEMOTHERAPEUTICS NOS [Concomitant]
  8. COGENTIN [Concomitant]
     Dosage: 4 MG, DAILY
     Route: 048
  9. ASPIRIN [Concomitant]
  10. TOPROL-XL [Concomitant]
     Dosage: 50MG, EVERY NIGHT AT BEDTIME
     Route: 048
  11. SINEMET [Concomitant]
  12. BENZTROPINE MESYLATE [Concomitant]
     Dosage: 2MG 2 PILLS DAILY
  13. FLOMAX [Concomitant]
     Dosage: 0.4MG DAILY
  14. ASPIRIN [Concomitant]
     Dosage: DAILY
  15. CARBIDOPA + LEVODOPA [Concomitant]
     Dosage: 10/100MG FOUR TIMES DAILY
  16. TRAZODONE [Concomitant]
     Indication: DEPRESSION
  17. ASPIRIN [Concomitant]
     Dosage: 325MG, DAILY
     Route: 048
  18. PEN-VEE K [Concomitant]
     Dosage: 500 MG / TID
  19. VINCRISTINE + ADRIAMYCIN + DEXAMETHASONE [Concomitant]
  20. CIPROFLOXACIN [Concomitant]
     Dosage: 500 MG, BID

REACTIONS (56)
  - AMNESIA [None]
  - ANXIETY [None]
  - ARTERIOSCLEROSIS [None]
  - ASTHENIA [None]
  - BACK PAIN [None]
  - BONE DENSITY DECREASED [None]
  - BONE PAIN [None]
  - BREAST HYPERPLASIA [None]
  - BRONCHITIS [None]
  - CARDIAC DISORDER [None]
  - CARDIOMYOPATHY [None]
  - CHEST PAIN [None]
  - COGNITIVE DISORDER [None]
  - DEMENTIA WITH LEWY BODIES [None]
  - DENTOFACIAL FUNCTIONAL DISORDER [None]
  - DISTURBANCE IN ATTENTION [None]
  - DIZZINESS [None]
  - DYSPHAGIA [None]
  - DYSPNOEA [None]
  - FATIGUE [None]
  - GALLBLADDER OPERATION [None]
  - GYNAECOMASTIA [None]
  - HALLUCINATION, VISUAL [None]
  - HEADACHE [None]
  - HEARING DISABILITY [None]
  - HERNIA [None]
  - HIP ARTHROPLASTY [None]
  - HYPOACUSIS [None]
  - INFECTION [None]
  - INJURY [None]
  - JAW DISORDER [None]
  - LACUNAR INFARCTION [None]
  - LOOSE TOOTH [None]
  - MUSCLE DISORDER [None]
  - MUSCLE STRAIN [None]
  - MUSCULOSKELETAL STIFFNESS [None]
  - OLFACTORY NERVE DISORDER [None]
  - OSTEONECROSIS [None]
  - OSTEOPOROSIS [None]
  - OSTEOSCLEROSIS [None]
  - PAIN [None]
  - PARKINSON'S DISEASE [None]
  - PHYSICAL DISABILITY [None]
  - PNEUMONIA [None]
  - POOR DENTAL CONDITION [None]
  - RIB FRACTURE [None]
  - SOMNOLENCE [None]
  - SPINAL OSTEOARTHRITIS [None]
  - STEM CELL TRANSPLANT [None]
  - TOOTH EXTRACTION [None]
  - TOOTH INFECTION [None]
  - TOURETTE'S DISORDER [None]
  - TREMOR [None]
  - URTICARIA [None]
  - VERTIGO [None]
  - VISUAL ACUITY REDUCED [None]
